FAERS Safety Report 25158376 (Version 2)
Quarter: 2025Q2

REPORT INFORMATION
  Report Type: Spontaneous
  Country: IT (occurrence: IT)
  Receive Date: 20250404
  Receipt Date: 20250417
  Transmission Date: 20250717
  Serious: Yes (Hospitalization, Disabling)
  Sender: SAMSUNG BIOEPIS
  Company Number: IT-SAMSUNG BIOEPIS-SB-2025-11183

PATIENT
  Sex: Female

DRUGS (1)
  1. ETANERCEPT [Suspect]
     Active Substance: ETANERCEPT
     Indication: Product used for unknown indication

REACTIONS (4)
  - Haemophagocytic lymphohistiocytosis [Unknown]
  - Joint effusion [Unknown]
  - Sepsis [Unknown]
  - Mass [Unknown]

NARRATIVE: CASE EVENT DATE: 20241030
